FAERS Safety Report 10483700 (Version 6)
Quarter: 2014Q4

REPORT INFORMATION
  Report Type: Spontaneous
  Country: US (occurrence: US)
  Receive Date: 20140930
  Receipt Date: 20141121
  Transmission Date: 20150528
  Serious: Yes (Hospitalization)
  Sender: FDA-Public Use
  Company Number: US-JNJFOC-20140922436

PATIENT
  Age: 79 Year
  Sex: Female
  Weight: 80.29 kg

DRUGS (7)
  1. CHLORTHALIDONE. [Concomitant]
     Active Substance: CHLORTHALIDONE
     Route: 048
  2. METOPROLOL [Concomitant]
     Active Substance: METOPROLOL
     Route: 048
  3. XARELTO [Suspect]
     Active Substance: RIVAROXABAN
     Indication: CEREBROVASCULAR ACCIDENT PROPHYLAXIS
     Route: 048
     Dates: start: 20130319, end: 20140917
  4. LOSARTAN [Concomitant]
     Active Substance: LOSARTAN
     Route: 048
  5. MEGARED [Concomitant]
     Route: 048
  6. XARELTO [Suspect]
     Active Substance: RIVAROXABAN
     Indication: ATRIAL FIBRILLATION
     Route: 048
     Dates: start: 20130319, end: 20140917
  7. CALCIUM [Concomitant]
     Active Substance: CALCIUM
     Route: 048

REACTIONS (5)
  - Colonoscopy [Unknown]
  - Loss of consciousness [Unknown]
  - Gastrointestinal haemorrhage [Recovered/Resolved]
  - Fall [Unknown]
  - Haemoglobin decreased [Recovering/Resolving]

NARRATIVE: CASE EVENT DATE: 20140908
